FAERS Safety Report 9768885 (Version 1)
Quarter: 2013Q4

REPORT INFORMATION
  Report Type: Spontaneous
  Country: US (occurrence: None)
  Receive Date: 20131217
  Receipt Date: 20131217
  Transmission Date: 20140711
  Serious: Yes (Hospitalization)
  Sender: FDA-Public Use
  Company Number: None

PATIENT
  Age: 61 Year
  Sex: Male

DRUGS (1)
  1. GEODON [Suspect]
     Indication: DEPRESSION
     Dosage: 2XA DAY
     Route: 048

REACTIONS (8)
  - Dyskinesia [None]
  - Dyskinesia [None]
  - Stress [None]
  - Anxiety [None]
  - Restlessness [None]
  - Insomnia [None]
  - Drug ineffective [None]
  - Suicidal ideation [None]
